FAERS Safety Report 7789350-9 (Version None)
Quarter: 2011Q3

REPORT INFORMATION
  Report Type: 
  Country: None (occurrence: None)
  Receive Date: 20110930
  Receipt Date: 20110923
  Transmission Date: 20111222
  Serious: Yes (Other)
  Sender: FDA-Public Use
  Company Number: BE-GLAXOSMITHKLINE-B0744229A

PATIENT
  Sex: Female
  Weight: 64 kg

DRUGS (5)
  1. EFFEXOR [Suspect]
     Indication: DEPRESSION
     Dosage: 150MG PER DAY
     Route: 048
     Dates: start: 20110201, end: 20110820
  2. SOLIAN [Concomitant]
     Indication: DEPRESSION
     Dosage: 1U PER DAY
     Route: 065
     Dates: start: 20110111, end: 20110820
  3. SIMVASTATIN [Concomitant]
     Indication: BLOOD CHOLESTEROL
     Dosage: 1U AT NIGHT
     Dates: start: 20110201
  4. WELLBUTRIN [Suspect]
     Indication: DEPRESSION
     Dosage: 1TAB PER DAY
     Route: 048
     Dates: start: 20101108, end: 20110820
  5. NORTRIPTYLINE HCL [Concomitant]
     Indication: DEPRESSION
     Dosage: 1U PER DAY
     Dates: start: 20110111, end: 20110820

REACTIONS (10)
  - PURULENT DISCHARGE [None]
  - PRURIGO [None]
  - VISUAL ACUITY REDUCED [None]
  - RASH ERYTHEMATOUS [None]
  - SKIN ULCER [None]
  - PIGMENTATION DISORDER [None]
  - RASH PRURITIC [None]
  - IMPAIRED HEALING [None]
  - SCAR [None]
  - RASH [None]
